FAERS Safety Report 5413862-6 (Version None)
Quarter: 2007Q3

REPORT INFORMATION
  Report Type: 
  Country: None (occurrence: None)
  Receive Date: 20070814
  Receipt Date: 20070601
  Transmission Date: 20080115
  Serious: No
  Sender: FDA-Public Use
  Company Number: US-BRISTOL-MYERS SQUIBB COMPANY-13800974

PATIENT
  Age: 43 Year
  Sex: Male

DRUGS (6)
  1. REYATAZ [Suspect]
     Indication: HIV INFECTION
  2. RITONAVIR [Concomitant]
  3. COMBIVIR [Concomitant]
  4. HYDROCHLOROTHIAZIDE [Concomitant]
  5. MULTIVITAMIN [Concomitant]
  6. MINERAL TAB [Concomitant]

REACTIONS (1)
  - BLOOD TRIGLYCERIDES INCREASED [None]
